FAERS Safety Report 6941528-X (Version None)
Quarter: 2010Q3

REPORT INFORMATION
  Report Type: 
  Country: None (occurrence: None)
  Receive Date: 20100825
  Receipt Date: 20100817
  Transmission Date: 20110219
  Serious: Yes (Other)
  Sender: FDA-Public Use
  Company Number: DE-AMGEN-KDL432036

PATIENT
  Sex: Male
  Weight: 126 kg

DRUGS (8)
  1. ARANESP [Suspect]
     Indication: RENAL FAILURE CHRONIC
     Route: 058
     Dates: start: 20100726
  2. BISOPROLOL [Concomitant]
     Route: 048
  3. DECORTIN-H [Concomitant]
     Route: 048
  4. EINSALPHA [Concomitant]
  5. IDEOS [Concomitant]
  6. AZATHIOPRINE [Concomitant]
     Route: 048
  7. NEXIUM [Concomitant]
     Route: 048
  8. AMLODIPINE [Concomitant]
     Route: 048

REACTIONS (5)
  - BURNING SENSATION [None]
  - MALAISE [None]
  - NAUSEA [None]
  - PAIN [None]
  - PRURITUS [None]
